FAERS Safety Report 15440339 (Version 1)
Quarter: 2018Q3

REPORT INFORMATION
  Report Type: Spontaneous
  Country: FR (occurrence: FR)
  Receive Date: 20180928
  Receipt Date: 20180928
  Transmission Date: 20181010
  Serious: Yes (Other)
  Sender: FDA-Public Use
  Company Number: PHHY2018FR108755

PATIENT
  Age: 10 Year
  Sex: Male

DRUGS (3)
  1. METHOTREXATE. [Suspect]
     Active Substance: METHOTREXATE
     Indication: ACUTE LYMPHOCYTIC LEUKAEMIA
     Route: 037
  2. ARACYTINE [Concomitant]
     Active Substance: CYTARABINE
     Indication: PRODUCT USED FOR UNKNOWN INDICATION
     Route: 037
  3. HYDROCORTISONE. [Concomitant]
     Active Substance: HYDROCORTISONE
     Indication: PRODUCT USED FOR UNKNOWN INDICATION
     Route: 037

REACTIONS (2)
  - Neurotoxicity [Unknown]
  - Pseudostroke [Unknown]
